FAERS Safety Report 18683780 (Version 2)
Quarter: 2021Q1

REPORT INFORMATION
  Report Type: Spontaneous
  Country: US (occurrence: US)
  Receive Date: 20201230
  Receipt Date: 20210211
  Transmission Date: 20210419
  Serious: Yes (Hospitalization, Other)
  Sender: FDA-Public Use
  Company Number: US-LUPIN PHARMACEUTICALS INC.-2020-11026

PATIENT
  Age: 15 Year
  Sex: Male

DRUGS (4)
  1. TOPIRAMAT [Suspect]
     Active Substance: TOPIRAMATE
     Indication: TIC
     Dosage: 75 MILLIGRAM, BID
     Route: 065
  2. GUANFACINE. [Concomitant]
     Active Substance: GUANFACINE
     Indication: IMPULSE-CONTROL DISORDER
     Dosage: 1 MILLIGRAM, QD
     Route: 065
  3. DESVENLAFAXINE. [Suspect]
     Active Substance: DESVENLAFAXINE
     Indication: OBSESSIVE-COMPULSIVE DISORDER
     Dosage: 50 MILLIGRAM, QD
     Route: 065
  4. LURASIDONE [Suspect]
     Active Substance: LURASIDONE
     Indication: TIC
     Dosage: 60 MILLIGRAM, QD
     Route: 065

REACTIONS (4)
  - Tic [Recovering/Resolving]
  - Suicidal ideation [Recovered/Resolved]
  - Drug ineffective [Unknown]
  - Off label use [Unknown]
